FAERS Safety Report 9486590 (Version 4)
Quarter: 2014Q2

REPORT INFORMATION
  Report Type: Report from Study
  Country: US (occurrence: US)
  Receive Date: 20130829
  Receipt Date: 20140516
  Transmission Date: 20141212
  Serious: Yes (Other)
  Sender: FDA-Public Use
  Company Number: PHEH2013US018229

PATIENT
  Age: 53 Year
  Sex: Male
  Weight: 98.6 kg

DRUGS (11)
  1. TOBI PODHALER [Suspect]
     Indication: CYSTIC FIBROSIS
     Dosage: 112 MG, BID (4 CAPSULES)
     Route: 055
     Dates: end: 20130731
  2. TOBI PODHALER [Suspect]
     Indication: PSEUDOMONAS INFECTION
     Dosage: 112 MG, BID
     Route: 055
     Dates: start: 201308, end: 201309
  3. ADVAIR [Concomitant]
     Dosage: 1 DF, BID
     Route: 055
  4. ZENPEP [Concomitant]
     Dosage: 5 WITH MEALS AND 3 WITH SNACKS
     Route: 048
  5. KINASE [Concomitant]
     Dosage: 2 SPRAYS
     Route: 045
  6. ZITHROMAX [Concomitant]
     Dosage: 300 MG, TIW
     Route: 048
  7. PULMOZYME [Concomitant]
     Dosage: 2.5 MG, DAILY
     Route: 055
  8. CLARITIN-D [Concomitant]
     Dosage: UNK
  9. AZITHROMYCIN [Concomitant]
     Dosage: UNK UKN, TIW
     Route: 048
  10. FLONASE [Concomitant]
     Dosage: UNK
  11. TOBI [Concomitant]
     Dosage: UNK, BID

REACTIONS (4)
  - Drug intolerance [Unknown]
  - Dyspnoea [Recovered/Resolved]
  - Chest pain [Unknown]
  - Chest discomfort [Unknown]
